FAERS Safety Report 21796877 (Version 4)
Quarter: 2024Q1

REPORT INFORMATION
  Report Type: Report from Study
  Country: US (occurrence: US)
  Receive Date: 20221230
  Receipt Date: 20240314
  Transmission Date: 20240409
  Serious: Yes (Other)
  Sender: FDA-Public Use
  Company Number: US-ACADIA PHARMACEUTICALS INC.-ACA-2022-PIM-004269

PATIENT
  Age: 81 Year
  Sex: Male

DRUGS (11)
  1. NUPLAZID [Suspect]
     Active Substance: PIMAVANSERIN TARTRATE
     Indication: Parkinson^s disease psychosis
     Dosage: 34 MILLIGRAM, QD
     Route: 048
     Dates: start: 20221104
  2. NUPLAZID [Suspect]
     Active Substance: PIMAVANSERIN TARTRATE
     Indication: Parkinson^s disease
  3. EXELON [Concomitant]
     Active Substance: RIVASTIGMINE TARTRATE
  4. ALPRAZOLAM [Concomitant]
     Active Substance: ALPRAZOLAM
  5. MESALAMINE [Concomitant]
     Active Substance: MESALAMINE
  6. OXYBUTYNIN [Concomitant]
     Active Substance: OXYBUTYNIN\OXYBUTYNIN CHLORIDE
  7. ASPIRIN [Concomitant]
     Active Substance: ASPIRIN
  8. FOLIC ACID [Concomitant]
     Active Substance: FOLIC ACID
  9. AMIODARONE [Concomitant]
     Active Substance: AMIODARONE
  10. RYTARY [Concomitant]
     Active Substance: CARBIDOPA\LEVODOPA
  11. VITAMIN D3 [Concomitant]
     Active Substance: CHOLECALCIFEROL

REACTIONS (8)
  - Atrial fibrillation [Unknown]
  - Blood pressure decreased [Unknown]
  - Cardiac pacemaker insertion [Unknown]
  - Heart rate decreased [Recovering/Resolving]
  - Therapeutic product effect variable [Not Recovered/Not Resolved]
  - Drug ineffective [Not Recovered/Not Resolved]
  - Therapeutic product effect decreased [Not Recovered/Not Resolved]
  - Hallucination [Unknown]

NARRATIVE: CASE EVENT DATE: 20240229
